FAERS Safety Report 9238720 (Version 1)
Quarter: 2013Q1

REPORT INFORMATION
  Report Type: Spontaneous
  Country: US (occurrence: None)
  Receive Date: 20121106
  Receipt Date: 20121106
  Transmission Date: 20140127
  Serious: No
  Sender: FDA-Public Use
  Company Number: 1000037065

PATIENT
  Age: 69 Year
  Sex: Female

DRUGS (8)
  1. DALIRESP (ROFLUMILAST) (500 MICROGRAM, TABLETS) [Suspect]
     Indication: CHRONIC OBSTRUCTIVE PULMONARY DISEASE
     Route: 048
     Dates: start: 20120705
  2. IMITREX (SUMATRIPTAN) (SUMATRIPTAN) [Concomitant]
  3. OMEPRAZOLE (OMEPRAZOLE) (OMEPRAZOLE) [Concomitant]
  4. GABAPENTIN (GABAPENTIN) (GABAPENTIN) [Concomitant]
  5. SYMBICORT (BUDESONIDE W/FORMOTEROL FUMARATE) (BUDESONIDE W/FORMOTEROL FUMARATE) [Concomitant]
  6. VALIUM (DIAZEPAM) (DIAZEPAM) [Concomitant]
  7. HYDROCODONE (HYDROCODONE) (HYDROCODONE) [Concomitant]
  8. POTASSIUM (POTASSIUM) (POTASSIUM) [Concomitant]

REACTIONS (3)
  - Nausea [None]
  - Insomnia [None]
  - Back pain [None]
